FAERS Safety Report 4949533-X (Version None)
Quarter: 2006Q1

REPORT INFORMATION
  Report Type: 
  Country: None (occurrence: None)
  Receive Date: 20060316
  Receipt Date: 20060213
  Transmission Date: 20060701
  Serious: Yes (Other)
  Sender: FDA-Public Use
  Company Number: DSA_81551_2006

PATIENT

DRUGS (3)
  1. XYREM [Suspect]
     Indication: FIBROMYALGIA
     Dosage: DF PO
     Route: 048
  2. XYREM [Suspect]
     Indication: RESTLESS LEGS SYNDROME
     Dosage: DF PO
     Route: 048
  3. TEGRETOL [Concomitant]

REACTIONS (1)
  - CONVULSION [None]
